FAERS Safety Report 9913419 (Version 2)
Quarter: 2014Q2

REPORT INFORMATION
  Report Type: Spontaneous
  Country: GB (occurrence: GB)
  Receive Date: 20140220
  Receipt Date: 20140408
  Transmission Date: 20141212
  Serious: Yes (Other)
  Sender: FDA-Public Use
  Company Number: GB-ASTELLAS-2014EU001424

PATIENT
  Sex: Female
  Weight: 57 kg

DRUGS (3)
  1. VESICARE [Suspect]
     Indication: URINARY INCONTINENCE
     Dosage: UNK
     Route: 048
     Dates: start: 20140109
  2. MELOXICAM [Concomitant]
     Indication: ARTHRITIS
     Dosage: UNK
     Route: 048
  3. OMEPRAZOLE [Concomitant]
     Dosage: UNK
     Route: 048

REACTIONS (7)
  - Hypersensitivity [Unknown]
  - Oropharyngeal pain [Unknown]
  - Lymphadenopathy [Unknown]
  - Gingival oedema [Unknown]
  - Swollen tongue [Unknown]
  - Aphagia [Unknown]
  - Gingival bleeding [Unknown]
